FAERS Safety Report 8906785 (Version 1)
Quarter: 2012Q4

REPORT INFORMATION
  Report Type: 
  Country: AT (occurrence: AT)
  Receive Date: 20121114
  Receipt Date: 20121114
  Transmission Date: 20130627
  Serious: Yes (Hospitalization)
  Sender: FDA-Public Use
  Company Number: AT-ELI_LILLY_AND_COMPANY-AT201211002780

PATIENT
  Age: 44 Year
  Sex: Female

DRUGS (5)
  1. TERIPARATIDE [Suspect]
     Indication: OSTEOGENESIS IMPERFECTA
     Dosage: UNK, qd
     Route: 058
     Dates: start: 20110203
  2. CALCIUM [Concomitant]
     Dosage: UNK
  3. VITAMIN D [Concomitant]
     Dosage: UNK
  4. VESICARE [Concomitant]
     Dosage: UNK
  5. CONCOR [Concomitant]
     Dosage: UNK

REACTIONS (3)
  - Renal pain [Recovering/Resolving]
  - Blood urine present [Unknown]
  - Nephrolithiasis [Unknown]
